FAERS Safety Report 7441536-9 (Version None)
Quarter: 2011Q2

REPORT INFORMATION
  Report Type: 
  Country: None (occurrence: None)
  Receive Date: 20110428
  Receipt Date: 20110414
  Transmission Date: 20111010
  Serious: Yes (Hospitalization, Other)
  Sender: FDA-Public Use
  Company Number: JP-JNJFOC-20100506468

PATIENT
  Sex: Female
  Weight: 48 kg

DRUGS (13)
  1. REMICADE [Suspect]
     Dosage: TOTAL 42 INFUSIONS
     Route: 042
  2. NON-PYRINE COLD PREPARATION [Concomitant]
     Indication: PNEUMONIA
     Route: 048
  3. ASVERIN [Concomitant]
     Indication: PNEUMONIA
     Route: 048
  4. PREDNISOLONE [Suspect]
     Indication: RHEUMATOID ARTHRITIS
     Route: 048
  5. AUGMENTIN [Concomitant]
     Indication: PNEUMONIA
     Route: 048
  6. REMICADE [Suspect]
     Indication: RHEUMATOID ARTHRITIS
     Route: 042
  7. CALONAL [Concomitant]
     Indication: RHEUMATOID ARTHRITIS
     Route: 048
  8. LAC-B [Concomitant]
     Indication: DIARRHOEA
     Route: 048
  9. RHEUMATREX [Suspect]
     Indication: RHEUMATOID ARTHRITIS
     Route: 048
  10. HALCION [Concomitant]
     Indication: INSOMNIA
  11. MUCODYNE [Concomitant]
     Indication: PNEUMONIA
     Route: 048
  12. REMICADE [Suspect]
     Route: 042
  13. REMICADE [Suspect]
     Dosage: 3MG/KG
     Route: 042

REACTIONS (4)
  - NEOPLASM MALIGNANT [None]
  - BRONCHITIS [None]
  - NASOPHARYNGITIS [None]
  - PNEUMONIA [None]
